FAERS Safety Report 12924930 (Version 3)
Quarter: 2017Q1

REPORT INFORMATION
  Report Type: Report from Study
  Country: US (occurrence: US)
  Receive Date: 20161108
  Receipt Date: 20170308
  Transmission Date: 20170428
  Serious: Yes (Hospitalization)
  Sender: FDA-Public Use
  Company Number: US-ACTELION-A-NJ2016-145194

PATIENT
  Age: 68 Year
  Sex: Female
  Weight: 141.68 kg

DRUGS (2)
  1. LETAIRIS [Concomitant]
     Active Substance: AMBRISENTAN
  2. UPTRAVI [Suspect]
     Active Substance: SELEXIPAG
     Indication: PULMONARY HYPERTENSION
     Dosage: 1400 MCG, BID
     Route: 048
     Dates: start: 20160614

REACTIONS (5)
  - Sepsis [Unknown]
  - Vascular access site occlusion [Unknown]
  - Headache [Unknown]
  - Dialysis related complication [Unknown]
  - Hypotension [Unknown]
